FAERS Safety Report 9105082 (Version 1)
Quarter: 2013Q1

REPORT INFORMATION
  Report Type: Spontaneous
  Country: BR (occurrence: BR)
  Receive Date: 20130220
  Receipt Date: 20130220
  Transmission Date: 20140127
  Serious: Yes (Hospitalization, Other)
  Sender: FDA-Public Use
  Company Number: BR-PFIZER INC-2013062578

PATIENT
  Age: 54 Year
  Sex: Male

DRUGS (4)
  1. LYRICA [Suspect]
     Indication: PAIN
     Dosage: 75 MG (ONE CAPSULE), 2X/DAY
     Route: 048
     Dates: start: 20080215
  2. ALPRAZOLAM [Concomitant]
     Indication: SLEEP DISORDER
     Dosage: UNK
  3. CYMBALTA [Concomitant]
     Indication: ANTIDEPRESSANT THERAPY
     Dosage: UNK
     Dates: start: 200802, end: 200806
  4. TRAMAL [Concomitant]
     Indication: PAIN
     Dosage: UNK

REACTIONS (3)
  - Spinal disorder [Unknown]
  - Spinal disorder [Not Recovered/Not Resolved]
  - Spinal disorder [Unknown]
